FAERS Safety Report 11589796 (Version 1)
Quarter: 2015Q4

REPORT INFORMATION
  Report Type: Spontaneous
  Country: US (occurrence: US)
  Receive Date: 20151002
  Receipt Date: 20151002
  Transmission Date: 20160304
  Serious: Yes (Other)
  Sender: FDA-Public Use
  Company Number: US-PFIZER INC-2015326698

PATIENT
  Age: 45 Year
  Sex: Female

DRUGS (2)
  1. TIGECYCLINE. [Suspect]
     Active Substance: TIGECYCLINE
  2. COLISTIN [Suspect]
     Active Substance: COLISTIN

REACTIONS (2)
  - Pathogen resistance [Unknown]
  - Klebsiella infection [Unknown]
